FAERS Safety Report 5208327-0 (Version None)
Quarter: 2007Q1

REPORT INFORMATION
  Report Type: 
  Country: None (occurrence: None)
  Receive Date: 20070110
  Receipt Date: 20070110
  Transmission Date: 20070707
  Serious: Yes (Other)
  Sender: FDA-Public Use
  Company Number: None

PATIENT
  Sex: Male
  Weight: 140.6151 kg

DRUGS (1)
  1. LAMISIL [Suspect]
     Indication: ONYCHOMYCOSIS

REACTIONS (6)
  - DRY SKIN [None]
  - INFLAMMATION [None]
  - RASH [None]
  - RASH ERYTHEMATOUS [None]
  - SKIN CHAPPED [None]
  - SKIN EXFOLIATION [None]
